FAERS Safety Report 9859111 (Version 2)
Quarter: 2014Q1

REPORT INFORMATION
  Report Type: Report from Study
  Country: US (occurrence: US)
  Receive Date: 20140131
  Receipt Date: 20140205
  Transmission Date: 20141002
  Serious: Yes (Hospitalization)
  Sender: FDA-Public Use
  Company Number: US-ACTELION-A-NJ2014-94331

PATIENT
  Age: 62 Year
  Sex: Female

DRUGS (5)
  1. VENTAVIS [Suspect]
     Indication: PULMONARY ARTERIAL HYPERTENSION
     Dosage: UNK
     Route: 055
  2. SULFASALAZINE [Suspect]
  3. SILDENAFIL [Concomitant]
  4. LETAIRIS [Concomitant]
  5. COUMADIN [Concomitant]

REACTIONS (2)
  - Pulmonary oedema [Recovered/Resolved]
  - Hypersensitivity [Recovered/Resolved]
